FAERS Safety Report 12853665 (Version 2)
Quarter: 2017Q1

REPORT INFORMATION
  Report Type: Spontaneous
  Country: DE (occurrence: DE)
  Receive Date: 20161017
  Receipt Date: 20170202
  Transmission Date: 20170428
  Serious: Yes (Death)
  Sender: FDA-Public Use
  Company Number: DE-WEST-WARD PHARMACEUTICALS CORP.-DE-H14001-16-02166

PATIENT
  Age: 29 Year
  Sex: Female
  Weight: 89 kg

DRUGS (1)
  1. CEFUROXIM HIKMA [Suspect]
     Active Substance: CEFUROXIME
     Indication: PROPHYLAXIS
     Route: 042

REACTIONS (3)
  - Anaphylactic shock [Fatal]
  - Bronchospasm [Fatal]
  - Disseminated intravascular coagulation [Fatal]

NARRATIVE: CASE EVENT DATE: 20160920
